FAERS Safety Report 25823413 (Version 1)
Quarter: 2025Q3

REPORT INFORMATION
  Report Type: Spontaneous
  Country: US (occurrence: US)
  Receive Date: 20250919
  Receipt Date: 20250919
  Transmission Date: 20251020
  Serious: No
  Sender: VIVUS
  Company Number: US-VIVUS, Inc.-2025V1000176

PATIENT

DRUGS (1)
  1. QSYMIA [Suspect]
     Active Substance: PHENTERMINE HYDROCHLORIDE\TOPIRAMATE
     Indication: Decreased appetite
     Route: 048

REACTIONS (2)
  - Vertigo [Recovered/Resolved]
  - Wrong technique in product usage process [Recovered/Resolved]
